FAERS Safety Report 5642445-8 (Version None)
Quarter: 2008Q1

REPORT INFORMATION
  Report Type: 
  Country: None (occurrence: None)
  Receive Date: 20080227
  Receipt Date: 20080227
  Transmission Date: 20080703
  Serious: Yes (Disabling, Other)
  Sender: FDA-Public Use
  Company Number: None

PATIENT
  Age: 44 Year
  Sex: Female

DRUGS (5)
  1. FOSAMAX [Suspect]
     Indication: OSTEOPOROSIS PROPHYLAXIS
     Dosage: 70MG/WK  2.5 YRS
     Dates: end: 20051201
  2. TOMOXIFEN [Concomitant]
  3. CYTOXAN [Concomitant]
  4. METHOTREXATE [Concomitant]
  5. FLUOROURACIL [Concomitant]

REACTIONS (2)
  - IMPAIRED HEALING [None]
  - OSTEONECROSIS [None]
